FAERS Safety Report 21123247 (Version 4)
Quarter: 2025Q2

REPORT INFORMATION
  Report Type: Spontaneous
  Country: US (occurrence: US)
  Receive Date: 20220724
  Receipt Date: 20250523
  Transmission Date: 20250717
  Serious: Yes (Other)
  Sender: SANOFI AVENTIS
  Company Number: US-SA-SAC20220721001550

PATIENT
  Age: 61 Year
  Sex: Female
  Weight: 61.2 kg

DRUGS (9)
  1. DUPIXENT [Suspect]
     Active Substance: DUPILUMAB
     Indication: Rheumatoid arthritis
     Dosage: 300 MG, QOW
     Route: 058
  2. DUPIXENT [Suspect]
     Active Substance: DUPILUMAB
     Indication: Illness
  3. DUPIXENT [Suspect]
     Active Substance: DUPILUMAB
     Indication: Asthma
  4. ACTEMRA [Suspect]
     Active Substance: TOCILIZUMAB
  5. XELJANZ [Concomitant]
     Active Substance: TOFACITINIB CITRATE
  6. VITAMIN E [Concomitant]
     Active Substance: .ALPHA.-TOCOPHEROL
  7. CITRACAL + D3 [Concomitant]
  8. POTASSIUM [Concomitant]
     Active Substance: POTASSIUM
  9. TYENNE [TOCILIZUMAB AAZG] [Concomitant]

REACTIONS (7)
  - Shoulder operation [Unknown]
  - COVID-19 [Unknown]
  - Malaise [Unknown]
  - Inflammation [Recovering/Resolving]
  - Surgery [Unknown]
  - Arthralgia [Recovering/Resolving]
  - Product use in unapproved indication [Unknown]

NARRATIVE: CASE EVENT DATE: 20250101
